FAERS Safety Report 7009453-6 (Version None)
Quarter: 2010Q3

REPORT INFORMATION
  Report Type: 
  Country: None (occurrence: None)
  Receive Date: 20100903
  Receipt Date: 20100812
  Transmission Date: 20110219
  Serious: No
  Sender: FDA-Public Use
  Company Number: 2010-00631

PATIENT
  Age: 59 Year
  Sex: Male
  Weight: 112.0385 kg

DRUGS (11)
  1. ZICAM COLD REMEDY NASAL GEL [Suspect]
     Dosage: 2 YEARS BEFORE 5/2009
  2. OXYCODONE HCL [Concomitant]
  3. ULTRAM [Concomitant]
  4. ACETAMINOPHEN AND HYDROCODONE BITARTRATE [Concomitant]
  5. BYETTA INSULIN [Concomitant]
  6. HYDROCHLOROTHIAZIDE [Concomitant]
  7. TENORETIC 100 [Concomitant]
  8. AMLODIPINE BESY-BENAZEPRIL HCL [Concomitant]
  9. METFORMIN HCL [Concomitant]
  10. INDOMETHACIN [Concomitant]
  11. ERGOCALCIFEROL [Concomitant]

REACTIONS (7)
  - ANOSMIA [None]
  - EPISTAXIS [None]
  - NASAL DISORDER [None]
  - NASAL ULCER [None]
  - RHINALGIA [None]
  - RHINORRHOEA [None]
  - THERMAL BURN [None]
